FAERS Safety Report 19732203 (Version 1)
Quarter: 2021Q3

REPORT INFORMATION
  Report Type: Spontaneous
  Country: US (occurrence: US)
  Receive Date: 20210820
  Receipt Date: 20210820
  Transmission Date: 20211014
  Serious: Yes (Hospitalization)
  Sender: FDA-Public Use
  Company Number: None

PATIENT
  Age: 5 Year
  Sex: Female
  Weight: 24 kg

DRUGS (6)
  1. VINCRISTINE SULFATE. [Suspect]
     Active Substance: VINCRISTINE SULFATE
     Dates: end: 20210702
  2. CYCLOPHOSPHAMIDE. [Suspect]
     Active Substance: CYCLOPHOSPHAMIDE
     Dates: end: 20210722
  3. ONCASPAR [Suspect]
     Active Substance: PEGASPARGASE
     Dates: end: 20210621
  4. METHOTREXATE. [Suspect]
     Active Substance: METHOTREXATE
     Dates: end: 20210729
  5. THIOGUANINE (6?TG) [Suspect]
     Active Substance: THIOGUANINE ANHYDROUS
     Dates: end: 20210802
  6. CYTARABINE. [Suspect]
     Active Substance: CYTARABINE
     Dates: end: 20210801

REACTIONS (7)
  - Faeces discoloured [None]
  - Haematemesis [None]
  - White blood cell count decreased [None]
  - Blood potassium decreased [None]
  - Chromaturia [None]
  - Neutrophil count decreased [None]
  - Platelet count decreased [None]

NARRATIVE: CASE EVENT DATE: 20210803
